FAERS Safety Report 7636670-4 (Version None)
Quarter: 2011Q3

REPORT INFORMATION
  Report Type: 
  Country: None (occurrence: None)
  Receive Date: 20110726
  Receipt Date: 20110715
  Transmission Date: 20111222
  Serious: No
  Sender: FDA-Public Use
  Company Number: US-BIOGENIDEC-2011BI026772

PATIENT
  Sex: Female

DRUGS (3)
  1. TYSABRI [Suspect]
     Indication: MULTIPLE SCLEROSIS
     Route: 042
     Dates: start: 20110317, end: 20110417
  2. TYSABRI [Suspect]
     Route: 042
     Dates: start: 20080814, end: 20100304
  3. AVONEX [Concomitant]
     Indication: MULTIPLE SCLEROSIS
     Route: 030
     Dates: start: 20060601

REACTIONS (8)
  - NEUROPATHY PERIPHERAL [None]
  - RENAL FAILURE ACUTE [None]
  - PSYCHOMOTOR HYPERACTIVITY [None]
  - MUSCLE ATROPHY [None]
  - MOBILITY DECREASED [None]
  - DRUG DEPENDENCE [None]
  - PARALYSIS [None]
  - PAIN [None]
